FAERS Safety Report 4551452-8 (Version None)
Quarter: 2005Q1

REPORT INFORMATION
  Report Type: 
  Country: None (occurrence: None)
  Receive Date: 20050106
  Receipt Date: 20041227
  Transmission Date: 20050727
  Serious: Yes (Hospitalization)
  Sender: FDA-Public Use
  Company Number: 2004-04019

PATIENT
  Age: 80 Year
  Sex: Male

DRUGS (3)
  1. IMMUCYST (BCG - IT (CONNAUGHT)), AVENTIS PASTEUR LTD., [Suspect]
     Indication: BLADDER CANCER
     Dosage: 81.0 MG B.IN., BLADDER
     Route: 043
     Dates: start: 20041020, end: 20041116
  2. LEVOFLOXACIN [Concomitant]
  3. ISONIAZID [Concomitant]

REACTIONS (2)
  - GRANULOCYTE COUNT DECREASED [None]
  - PYREXIA [None]
